FAERS Safety Report 24295328 (Version 1)
Quarter: 2024Q3

REPORT INFORMATION
  Report Type: Spontaneous
  Country: GB (occurrence: GB)
  Receive Date: 20240907
  Receipt Date: 20240907
  Transmission Date: 20241016
  Serious: Yes (Other)
  Sender: MERCK
  Company Number: GB-MHRA-EMIS-11584-11ca7a8c-ee85-4d69-85a2-c84e5eeeb4ff

PATIENT
  Age: 67 Year
  Sex: Male
  Weight: 170 kg

DRUGS (7)
  1. SITAGLIPTIN PHOSPHATE [Suspect]
     Active Substance: SITAGLIPTIN PHOSPHATE
     Dosage: UNKNOWN
     Dates: start: 20240808, end: 20240827
  2. SITAGLIPTIN PHOSPHATE [Concomitant]
     Active Substance: SITAGLIPTIN PHOSPHATE
     Dosage: 1 DAILY IF TOLERATE IT, DOSE INCREASE TO 100MG
     Dates: start: 20240808
  3. TRAMADOL [Concomitant]
     Active Substance: TRAMADOL\TRAMADOL HYDROCHLORIDE
     Dosage: 1 CAP 4 HOURLY
     Dates: start: 20240607, end: 20240720
  4. ALBUTEROL [Concomitant]
     Active Substance: ALBUTEROL
     Indication: Adverse drug reaction
     Dosage: INHALE 2 DOSES AS NEEDED
     Dates: start: 20240618, end: 20240731
  5. METFORMIN [Concomitant]
     Active Substance: METFORMIN HYDROCHLORIDE
     Dosage: 1 MORNING FOR 1 WEEK THEN INCREASE TO 1 MORNING AND EVENING
     Dates: start: 20240627
  6. DAPAGLIFLOZIN [Concomitant]
     Active Substance: DAPAGLIFLOZIN
     Dosage: ONE TO BE TAKEN DAILY
     Dates: start: 20240711, end: 20240808
  7. COCODAMOL [Concomitant]
     Active Substance: ACETAMINOPHEN\CODEINE PHOSPHATE
     Dosage: ONE OR TWO TO BE TAKEN FOUR TIMES A DAY WHEN REQUIRED
     Dates: start: 20240821

REACTIONS (2)
  - Oedema peripheral [Unknown]
  - Oral pain [Unknown]

NARRATIVE: CASE EVENT DATE: 20240814
